FAERS Safety Report 9438980 (Version 1)
Quarter: 2013Q3

REPORT INFORMATION
  Report Type: Spontaneous
  Country: GB (occurrence: GB)
  Receive Date: 20130802
  Receipt Date: 20130802
  Transmission Date: 20140515
  Serious: Yes (Death, Congenital Anomaly)
  Sender: FDA-Public Use
  Company Number: PHHY2013GB082324

PATIENT
  Sex: 0

DRUGS (1)
  1. CITALOPRAM [Suspect]
     Dosage: MATERNAL DOSE: 20 MG ONCE DAILY
     Route: 064
     Dates: start: 2010, end: 2010

REACTIONS (2)
  - Pulmonary artery stenosis congenital [Fatal]
  - Foetal exposure during pregnancy [Recovered/Resolved]
